FAERS Safety Report 16958114 (Version 2)
Quarter: 2019Q4

REPORT INFORMATION
  Report Type: Spontaneous
  Country: US (occurrence: US)
  Receive Date: 20191024
  Receipt Date: 20191121
  Transmission Date: 20200122
  Serious: No
  Sender: FDA-Public Use
  Company Number: US-ASTRAZENECA-2019SF31929

PATIENT
  Sex: Male
  Weight: 117.9 kg

DRUGS (1)
  1. PULMICORT FLEXHALER [Suspect]
     Active Substance: BUDESONIDE
     Indication: COUGH
     Route: 055
     Dates: start: 201908

REACTIONS (3)
  - Product dose omission [Unknown]
  - Cough [Not Recovered/Not Resolved]
  - Device issue [Unknown]
